FAERS Safety Report 18721459 (Version 2)
Quarter: 2021Q2

REPORT INFORMATION
  Report Type: Report from Study
  Country: NL (occurrence: NL)
  Receive Date: 20210110
  Receipt Date: 20210525
  Transmission Date: 20210717
  Serious: Yes (Hospitalization)
  Sender: FDA-Public Use
  Company Number: NL-TEVA-2020-NL-1865654

PATIENT
  Sex: Female

DRUGS (4)
  1. CAPECITABINE. [Suspect]
     Active Substance: CAPECITABINE
     Indication: HER2 NEGATIVE BREAST CANCER
     Dosage: 1000 MG/M2 TWICE DAILY P.O. FOR TWO WEEKS FOLLOWED BY A ONE?WEEK REST PERIOD
  2. LIPOSOMAL DOXORUBICIN [Suspect]
     Active Substance: DOXORUBICIN HYDROCHLORIDE
     Indication: HER2 NEGATIVE BREAST CANCER
  3. PACLITAXEL. [Suspect]
     Active Substance: PACLITAXEL
     Indication: HER2 NEGATIVE BREAST CANCER
     Dosage: 90 MG/M2 IV ON DAYS 1, 8 AND 15 EVERY 28 DAYS
  4. BEVACIZUMAB. [Suspect]
     Active Substance: BEVACIZUMAB
     Indication: HER2 NEGATIVE BREAST CANCER
     Dosage: 10 MG/KG IV ON DAYS 1 AND 15 EVERY 28 DAYS // AFTER DISCONTINUATION OF PACLITAXEL: 15 MG/KG IV ON DA

REACTIONS (1)
  - Arteriospasm coronary [Recovered/Resolved]

NARRATIVE: CASE EVENT DATE: 20151017
